FAERS Safety Report 18118074 (Version 1)
Quarter: 2020Q3

REPORT INFORMATION
  Report Type: Spontaneous
  Country: US (occurrence: US)
  Receive Date: 20200805
  Receipt Date: 20200805
  Transmission Date: 20201103
  Serious: Yes (Hospitalization)
  Sender: FDA-Public Use
  Company Number: None

PATIENT
  Age: 65 Year
  Sex: Male

DRUGS (4)
  1. HYDRALAZINE [Concomitant]
     Active Substance: HYDRALAZINE HYDROCHLORIDE
  2. SILDENAFIL. [Concomitant]
     Active Substance: SILDENAFIL
  3. VIAGRA [Concomitant]
     Active Substance: SILDENAFIL CITRATE
  4. SUTENT [Suspect]
     Active Substance: SUNITINIB MALATE
     Indication: RHINITIS ALLERGIC
     Route: 048

REACTIONS (1)
  - COVID-19 [None]

NARRATIVE: CASE EVENT DATE: 20200804
